FAERS Safety Report 16804849 (Version 1)
Quarter: 2019Q3

REPORT INFORMATION
  Report Type: Spontaneous
  Country: CN (occurrence: CN)
  Receive Date: 20190913
  Receipt Date: 20190913
  Transmission Date: 20191005
  Serious: Yes (Disabling, Other)
  Sender: FDA-Public Use
  Company Number: CN-BRACCO-2019CN04517

PATIENT
  Age: 63 Year
  Sex: Male

DRUGS (2)
  1. IOPAMIRO [Suspect]
     Active Substance: IOPAMIDOL
     Indication: ANGIOGRAM
     Dosage: 250 ML, SINGLE
     Route: 013
     Dates: start: 20190827, end: 20190828
  2. IOHEXOL [Suspect]
     Active Substance: IOHEXOL
     Indication: ANGIOGRAM
     Dosage: 250 ML
     Route: 013
     Dates: start: 20190827, end: 20190828

REACTIONS (4)
  - Oliguria [Recovering/Resolving]
  - Renal failure [Recovering/Resolving]
  - Tachypnoea [Recovering/Resolving]
  - Acute kidney injury [Recovering/Resolving]

NARRATIVE: CASE EVENT DATE: 20190828
